FAERS Safety Report 15012874 (Version 1)
Quarter: 2018Q2

REPORT INFORMATION
  Report Type: Report from Study
  Country: AU (occurrence: AU)
  Receive Date: 20180614
  Receipt Date: 20180614
  Transmission Date: 20180711
  Serious: Yes (Death, Other)
  Sender: FDA-Public Use
  Company Number: PHHY2018AU018653

PATIENT
  Age: 69 Year
  Sex: Female
  Weight: 73 kg

DRUGS (1)
  1. MIDOSTAURIN [Suspect]
     Active Substance: MIDOSTAURIN
     Indication: ACUTE MYELOID LEUKAEMIA
     Dosage: 50 MG, BID
     Route: 048
     Dates: start: 20180309, end: 20180322

REACTIONS (4)
  - Metabolic encephalopathy [Recovered/Resolved]
  - Bone pain [Unknown]
  - Neutropenic sepsis [Not Recovered/Not Resolved]
  - Enterococcal infection [Fatal]

NARRATIVE: CASE EVENT DATE: 20180312
